FAERS Safety Report 5807414-3 (Version None)
Quarter: 2008Q3

REPORT INFORMATION
  Report Type: 
  Country: None (occurrence: None)
  Receive Date: 20080711
  Receipt Date: 20080707
  Transmission Date: 20090109
  Serious: Yes (Death)
  Sender: FDA-Public Use
  Company Number: DE-ROCHE-571657

PATIENT
  Sex: Female

DRUGS (3)
  1. XELODA [Suspect]
     Route: 065
     Dates: start: 20080318, end: 20080328
  2. HERCEPTIN [Concomitant]
     Indication: BREAST CANCER
     Dates: end: 20080213
  3. DOCETAXEL [Concomitant]
     Indication: BREAST CANCER
     Dates: end: 20071212

REACTIONS (3)
  - GASTROENTERITIS [None]
  - LEUKOPENIA [None]
  - SEPSIS [None]
